FAERS Safety Report 9759251 (Version 1)
Quarter: 2013Q4

REPORT INFORMATION
  Report Type: Spontaneous
  Country: US (occurrence: US)
  Receive Date: 20131216
  Receipt Date: 20131216
  Transmission Date: 20140711
  Serious: No
  Sender: FDA-Public Use
  Company Number: US-B.I. PHARMACEUTICALS,INC./RIDGEFIELD-2013-BI-40192BP

PATIENT
  Age: 69 Year
  Sex: Female
  Weight: 57 kg

DRUGS (7)
  1. SPIRIVA [Suspect]
     Indication: CHRONIC OBSTRUCTIVE PULMONARY DISEASE
     Dosage: 18 MCG
     Route: 055
     Dates: start: 2008
  2. FLUVOXAMINE [Concomitant]
     Indication: DEPRESSION
     Dosage: 50 MG
     Route: 048
  3. CLONAZEPAM [Concomitant]
     Indication: DEPRESSION
     Dosage: 1 MG
     Route: 048
  4. PREMPRO [Concomitant]
     Indication: OESTROGEN REPLACEMENT THERAPY
     Dosage: 0.3 MG
     Route: 048
  5. FLOVENT [Concomitant]
     Indication: CHRONIC OBSTRUCTIVE PULMONARY DISEASE
     Dosage: 4 PUF
     Route: 055
  6. LEVOTHYROXINE [Concomitant]
     Indication: HYPOTHYROIDISM
     Dosage: 50 MCG
     Route: 048
  7. PROAIR [Concomitant]
     Indication: CHRONIC OBSTRUCTIVE PULMONARY DISEASE
     Route: 055

REACTIONS (3)
  - Dysuria [Not Recovered/Not Resolved]
  - Groin pain [Not Recovered/Not Resolved]
  - Rash [Not Recovered/Not Resolved]
